FAERS Safety Report 21979568 (Version 2)
Quarter: 2023Q1

REPORT INFORMATION
  Report Type: Spontaneous
  Country: US (occurrence: US)
  Receive Date: 20230210
  Receipt Date: 20230314
  Transmission Date: 20230418
  Serious: No
  Sender: FDA-Public Use
  Company Number: US-Blueprint Medicines Corporation-SP-US-2023-000258

PATIENT
  Age: 61 Year
  Sex: Female

DRUGS (1)
  1. AYVAKIT [Suspect]
     Active Substance: AVAPRITINIB
     Indication: Systemic mastocytosis
     Route: 048
     Dates: start: 20230107

REACTIONS (9)
  - Synovial cyst [Not Recovered/Not Resolved]
  - Gait inability [Recovered/Resolved]
  - Feeling abnormal [Not Recovered/Not Resolved]
  - Tryptase increased [Recovering/Resolving]
  - Dizziness [Not Recovered/Not Resolved]
  - Periorbital swelling [Recovering/Resolving]
  - Arthralgia [Not Recovered/Not Resolved]
  - Platelet count decreased [Not Recovered/Not Resolved]
  - Hair colour changes [Not Recovered/Not Resolved]

NARRATIVE: CASE EVENT DATE: 20230121
